FAERS Safety Report 9159139 (Version 1)
Quarter: 2013Q1

REPORT INFORMATION
  Report Type: Spontaneous
  Country: BR (occurrence: None)
  Receive Date: 20130213
  Receipt Date: 20130213
  Transmission Date: 20140127
  Serious: Yes (Other)
  Sender: FDA-Public Use
  Company Number: 2013P1001974

PATIENT
  Age: 79 Year
  Sex: 0

DRUGS (2)
  1. METOCLOPRAMIDE [Suspect]
  2. HALOPERIDOL [Suspect]

REACTIONS (1)
  - Parkinsonism [None]
